FAERS Safety Report 15865240 (Version 1)
Quarter: 2019Q1

REPORT INFORMATION
  Report Type: Spontaneous
  Country: FR (occurrence: FR)
  Receive Date: 20190124
  Receipt Date: 20190124
  Transmission Date: 20190417
  Serious: Yes (Hospitalization, Other)
  Sender: FDA-Public Use
  Company Number: FR-BRISTOL-MYERS SQUIBB COMPANY-BMS-2019-005888

PATIENT
  Age: 68 Year
  Sex: Male

DRUGS (1)
  1. OPDIVO [Suspect]
     Active Substance: NIVOLUMAB
     Indication: METASTATIC BRONCHIAL CARCINOMA
     Dosage: 240 MG, 2 WEEK DRUG INTERVAL
     Route: 048
     Dates: start: 20181217, end: 20181217

REACTIONS (5)
  - Hypoxia [Recovered/Resolved]
  - Livedo reticularis [Recovered/Resolved]
  - Hypertension [Recovered/Resolved]
  - Tremor [Recovered/Resolved]
  - Chills [Recovered/Resolved]

NARRATIVE: CASE EVENT DATE: 20181217
